APPROVED DRUG PRODUCT: DEPAKOTE
Active Ingredient: DIVALPROEX SODIUM
Strength: EQ 125MG VALPROIC ACID
Dosage Form/Route: CAPSULE, DELAYED REL PELLETS;ORAL
Application: N019680 | Product #001 | TE Code: AB
Applicant: ABBVIE INC
Approved: Sep 12, 1989 | RLD: Yes | RS: Yes | Type: RX